FAERS Safety Report 6310847-2 (Version None)
Quarter: 2009Q3

REPORT INFORMATION
  Report Type: 
  Country: None (occurrence: None)
  Receive Date: 20090812
  Receipt Date: 20090728
  Transmission Date: 20100115
  Serious: Yes (Hospitalization)
  Sender: FDA-Public Use
  Company Number: JPI-P-007106

PATIENT
  Age: 57 Year
  Sex: Female
  Weight: 72.1219 kg

DRUGS (17)
  1. XYREM [Suspect]
     Indication: NARCOLEPSY
     Dosage: 4.5 GM (2.25 GM, 2 IN 1 D), ORAL; 4.5 GM (4.5 GM, 1 IN 1 D), ORAL
     Route: 048
     Dates: start: 20090425, end: 20090426
  2. XYREM [Suspect]
     Indication: NARCOLEPSY
     Dosage: 4.5 GM (2.25 GM, 2 IN 1 D), ORAL; 4.5 GM (4.5 GM, 1 IN 1 D), ORAL
     Route: 048
     Dates: start: 20090429, end: 20090709
  3. OXYCODONE (PILL) [Concomitant]
  4. ACETAMINOPHEN WITH OXYCODONE (PILL) [Concomitant]
  5. PREGABALIN (PILL) [Concomitant]
  6. RIVASTIGMINE (PILL) [Concomitant]
  7. MEMANTINE (PILL) [Concomitant]
  8. HYDROCHLOROTHIAZIDE (PILL) [Concomitant]
  9. ATENOLOL (PILL) [Concomitant]
  10. FOLIC ACID (PILL) [Concomitant]
  11. LORAZEPAM (PILL) [Concomitant]
  12. FENOFIBRATE (PILL) [Concomitant]
  13. ROPINIROLE (PILL) [Concomitant]
  14. QUETIAPINE (PILL) [Concomitant]
  15. SELEGILINE (POULTICE OR PATCH) [Concomitant]
  16. HYOSCYAMINE (PILL) [Concomitant]
  17. NITROFURANTOIN (PILL) [Concomitant]

REACTIONS (4)
  - LOSS OF CONSCIOUSNESS [None]
  - MIGRAINE [None]
  - TRANSIENT ISCHAEMIC ATTACK [None]
  - TRICUSPID VALVE INCOMPETENCE [None]
